FAERS Safety Report 8778883 (Version 1)
Quarter: 2012Q4

REPORT INFORMATION
  Report Type: 
  Country: CA (occurrence: CA)
  Receive Date: 20120912
  Receipt Date: 20120912
  Transmission Date: 20130627
  Serious: Yes (Hospitalization)
  Sender: FDA-Public Use
  Company Number: CA-BAYER-2012-094554

PATIENT
  Age: 39 Year
  Sex: Female
  Weight: 118 kg

DRUGS (7)
  1. AVELOX [Suspect]
     Route: 065
  2. REMICADE [Suspect]
     Dosage: 400 mg, Q2MON
     Route: 042
  3. UNKNOWN MEDICATION [Suspect]
     Route: 065
  4. DIOVAN [Concomitant]
  5. PREDNISONE [Concomitant]
  6. PREVACID [Concomitant]
  7. TYLENOL WITH CODEIN #4 [Concomitant]

REACTIONS (8)
  - Diarrhoea [Unknown]
  - Gastrointestinal disorder [Unknown]
  - Heart rate increased [Unknown]
  - Influenza [Unknown]
  - Pain [Unknown]
  - Rash [Unknown]
  - Serotonin syndrome [Unknown]
  - Sinusitis [Unknown]
